FAERS Safety Report 17421432 (Version 2)
Quarter: 2020Q1

REPORT INFORMATION
  Report Type: Spontaneous
  Country: US (occurrence: US)
  Receive Date: 20200214
  Receipt Date: 20200229
  Transmission Date: 20200409
  Serious: No
  Sender: FDA-Public Use
  Company Number: US-TEVA-2020-US-1184358

PATIENT
  Sex: Male

DRUGS (1)
  1. TRIHEXYPHENIDYL HYDROCHLORIDE TABLETS [Suspect]
     Active Substance: TRIHEXYPHENIDYL HYDROCHLORIDE

REACTIONS (1)
  - Drug ineffective [Unknown]
